FAERS Safety Report 11928711 (Version 3)
Quarter: 2016Q1

REPORT INFORMATION
  Report Type: Report from Study
  Country: DE (occurrence: CO)
  Receive Date: 20160119
  Receipt Date: 20160310
  Transmission Date: 20160526
  Serious: Yes (Death, Hospitalization, Other)
  Sender: FDA-Public Use
  Company Number: DE-ACTELION-A-US2016-130135

PATIENT
  Age: 26 Year
  Sex: Female

DRUGS (1)
  1. VENTAVIS [Suspect]
     Active Substance: ILOPROST
     Indication: PULMONARY HYPERTENSION
     Dosage: 1 DF, 6ID
     Route: 055
     Dates: start: 20150101, end: 20160108

REACTIONS (6)
  - Disease progression [Fatal]
  - Post procedural complication [Not Recovered/Not Resolved]
  - Pulmonary hypertension [Fatal]
  - Multiple organ dysfunction syndrome [Unknown]
  - Bladder operation [Unknown]
  - Discomfort [Unknown]

NARRATIVE: CASE EVENT DATE: 20160108
